FAERS Safety Report 25483336 (Version 1)
Quarter: 2025Q2

REPORT INFORMATION
  Report Type: Spontaneous
  Country: US (occurrence: US)
  Receive Date: 20250626
  Receipt Date: 20250626
  Transmission Date: 20250716
  Serious: Yes (Other)
  Sender: PFIZER
  Company Number: US-PFIZER INC-PV202400055108

PATIENT
  Age: 86 Year
  Sex: Female

DRUGS (2)
  1. IBRANCE [Suspect]
     Active Substance: PALBOCICLIB
     Indication: Neoplasm malignant
     Route: 048
  2. ESTRADIOL [Concomitant]
     Active Substance: ESTRADIOL
     Dosage: PLACE 1 G VAGINALLY 2 TIMES WEEKLY
     Route: 067

REACTIONS (2)
  - Neoplasm malignant [Unknown]
  - Malignant neoplasm progression [Unknown]
